FAERS Safety Report 7402068-7 (Version None)
Quarter: 2011Q2

REPORT INFORMATION
  Report Type: 
  Country: None (occurrence: None)
  Receive Date: 20110408
  Receipt Date: 20081001
  Transmission Date: 20111010
  Serious: Yes (Death, Hospitalization, Other)
  Sender: FDA-Public Use
  Company Number: US-BAYER-2011-005734

PATIENT
  Age: 75 Year
  Sex: Male
  Weight: 76.7 kg

DRUGS (24)
  1. SOLU-MEDROL [Concomitant]
     Dosage: EVERY 8 HOURS FOR ONE SEQUENCE
     Route: 042
  2. IMDUR [Concomitant]
     Dosage: 60 MG, QD
     Route: 048
     Dates: start: 19990301, end: 20010921
  3. PRINIVIL [Concomitant]
     Dosage: 5 MG, QD
     Route: 048
     Dates: start: 19990301, end: 20010921
  4. K-DUR [Concomitant]
     Dosage: 20 MG, QD
     Route: 048
     Dates: start: 19990301, end: 20010921
  5. HEPARIN [Concomitant]
     Dosage: 20,000 UNITS IN 1,000 ML NORMAL SALINE; IRRGATION
     Dates: start: 20010912, end: 20010912
  6. PAPAVERINE [Concomitant]
     Dosage: 120 MG IN 50 ML NORMAL SALINE
     Dates: start: 20010912, end: 20010912
  7. THROMBIN LOCAL SOLUTION [Concomitant]
     Dosage: 10,000 UNITS IN 10 ML NORMAL SALINE
     Route: 061
     Dates: start: 20010912, end: 20010912
  8. NITROGLYCERIN [Concomitant]
     Dosage: 0.5 MCG/KG/MIN
     Route: 042
     Dates: start: 20010912, end: 20010912
  9. DOPAMINE [Concomitant]
     Dosage: 5 MCG/KG/MIN
     Route: 042
     Dates: start: 20010912, end: 20010912
  10. TRASYLOL,TRASYLOL [Suspect]
     Indication: SURGERY
     Dosage: UNK
     Route: 042
     Dates: start: 20010912, end: 20010912
  11. DIGOXIN [Concomitant]
     Dosage: 0.125 MG, QD
     Route: 048
     Dates: start: 19990301, end: 20010921
  12. ACETYLSALICYLIC ACID SRT [Concomitant]
     Dosage: 325 MG, QD
     Route: 048
     Dates: start: 19990301, end: 20010921
  13. VANCOMYCIN [Concomitant]
     Dosage: 2 GM IN 1000 ML NORMAL SALINE; IRRIGATION
     Dates: start: 20010912, end: 20010912
  14. VERSED [Concomitant]
     Dosage: UNK
     Route: 042
     Dates: start: 20010912, end: 20010912
  15. PROVENTIL [Concomitant]
     Dosage: EVERY 6 HOURS; INHALER
  16. SYNTHROID [Concomitant]
     Dosage: 0.05 MCG/24HR, UNK
     Route: 048
     Dates: start: 19990301, end: 20010921
  17. HEPARIN [Concomitant]
     Dosage: 5,000 UNITS; 3 MG/KG
     Route: 042
     Dates: start: 20010912, end: 20010912
  18. INSULIN [Concomitant]
     Dosage: UNK
     Route: 042
     Dates: start: 20010912, end: 20010912
  19. PROCAINAMIDE [Concomitant]
     Dosage: UNK
     Route: 042
     Dates: start: 20010912, end: 20010912
  20. VERAPAMIL [Concomitant]
  21. PLAVIX [Concomitant]
     Dosage: 75 MG, QD
     Route: 048
     Dates: start: 19990301, end: 20010921
  22. LASIX [Concomitant]
     Dosage: 40 MG, QD
     Route: 048
     Dates: start: 19990301, end: 20010921
  23. COREG [Concomitant]
     Dosage: 3.125 MG, BID
     Route: 048
     Dates: start: 20010901, end: 20010921
  24. NIPRIDE [Concomitant]
     Dosage: UNK
     Route: 042
     Dates: start: 20010912, end: 20010912

REACTIONS (9)
  - CORONARY ARTERY DISEASE [None]
  - ANXIETY [None]
  - PAIN [None]
  - INTESTINAL ISCHAEMIA [None]
  - STRESS [None]
  - RENAL FAILURE [None]
  - JOINT STIFFNESS [None]
  - EMOTIONAL DISTRESS [None]
  - INJURY [None]
